FAERS Safety Report 24631401 (Version 1)
Quarter: 2024Q4

REPORT INFORMATION
  Report Type: Spontaneous
  Country: SE (occurrence: SE)
  Receive Date: 20241118
  Receipt Date: 20241118
  Transmission Date: 20250115
  Serious: Yes (Other)
  Sender: MYLAN
  Company Number: SE-MYLANLABS-2024M1101916

PATIENT
  Age: 30 Year
  Sex: Male

DRUGS (1)
  1. METHIMAZOLE [Suspect]
     Active Substance: METHIMAZOLE
     Indication: Product used for unknown indication
     Dosage: UNK
     Route: 065
     Dates: end: 20240714

REACTIONS (7)
  - Hyperbilirubinaemia [Unknown]
  - Diabetes mellitus inadequate control [Unknown]
  - Yellow skin [Unknown]
  - Hyperhidrosis [Unknown]
  - Hepatic enzyme increased [Unknown]
  - Pruritus [Unknown]
  - Rash [Unknown]

NARRATIVE: CASE EVENT DATE: 20240711
